FAERS Safety Report 7866389-6 (Version None)
Quarter: 2011Q4

REPORT INFORMATION
  Report Type: 
  Country: None (occurrence: None)
  Receive Date: 20111028
  Receipt Date: 20110601
  Transmission Date: 20120403
  Serious: No
  Sender: FDA-Public Use
  Company Number: US-GLAXOSMITHKLINE-A0930798A

PATIENT
  Age: 35 Year
  Sex: Female

DRUGS (2)
  1. NONE [Concomitant]
  2. ADVAIR DISKUS 100/50 [Suspect]
     Indication: PRODUCT USED FOR UNKNOWN INDICATION
     Route: 055
     Dates: start: 20110517, end: 20110531

REACTIONS (3)
  - PRURITUS [None]
  - CHEST PAIN [None]
  - RASH GENERALISED [None]
